FAERS Safety Report 11869991 (Version 11)
Quarter: 2017Q4

REPORT INFORMATION
  Report Type: Report from Study
  Country: CA (occurrence: CA)
  Receive Date: 20151228
  Receipt Date: 20171123
  Transmission Date: 20180320
  Serious: Yes (Hospitalization, Other)
  Sender: FDA-Public Use
  Company Number: CA-ROCHE-1621453

PATIENT
  Age: 62 Year
  Sex: Male

DRUGS (40)
  1. NEXIUM [Concomitant]
     Active Substance: ESOMEPRAZOLE MAGNESIUM
     Route: 065
  2. EFFEXOR [Concomitant]
     Active Substance: VENLAFAXINE HYDROCHLORIDE
  3. PREDNISONE. [Concomitant]
     Active Substance: PREDNISONE
     Route: 065
     Dates: start: 20110617
  4. TRIAMCINOLONE [Concomitant]
     Active Substance: TRIAMCINOLONE
  5. MESTINON [Concomitant]
     Active Substance: PYRIDOSTIGMINE BROMIDE
     Route: 065
     Dates: end: 20130927
  6. TRIAMCINOLONE [Concomitant]
     Active Substance: TRIAMCINOLONE
  7. RITUXAN [Suspect]
     Active Substance: RITUXIMAB
     Route: 042
     Dates: start: 20150827
  8. PREDNISONE. [Concomitant]
     Active Substance: PREDNISONE
     Route: 065
  9. PREDNISONE. [Concomitant]
     Active Substance: PREDNISONE
     Route: 065
     Dates: start: 20111002
  10. PREDNISONE. [Concomitant]
     Active Substance: PREDNISONE
     Route: 065
     Dates: start: 20140304
  11. OMEGA 3 [Concomitant]
     Active Substance: OMEGA-3 FATTY ACIDS
     Route: 065
  12. EZETROL [Concomitant]
     Active Substance: EZETIMIBE
  13. PREDNISONE. [Concomitant]
     Active Substance: PREDNISONE
     Route: 065
     Dates: start: 20111129
  14. PREDNISONE. [Concomitant]
     Active Substance: PREDNISONE
     Route: 065
     Dates: start: 20120122
  15. PREDNISONE. [Concomitant]
     Active Substance: PREDNISONE
     Route: 065
     Dates: start: 20140401
  16. FLOMAX [Concomitant]
     Active Substance: TAMSULOSIN HYDROCHLORIDE
     Route: 065
  17. RITUXAN [Suspect]
     Active Substance: RITUXIMAB
     Indication: MYASTHENIA GRAVIS
     Route: 042
     Dates: start: 20120220, end: 20171023
  18. PREDNISONE. [Concomitant]
     Active Substance: PREDNISONE
     Route: 065
     Dates: start: 20110628
  19. RESTASIS [Concomitant]
     Active Substance: CYCLOSPORINE
     Dosage: 2 DROPS PER DAY
     Route: 065
     Dates: start: 20140202
  20. VENLAFAXINE [Concomitant]
     Active Substance: VENLAFAXINE HYDROCHLORIDE
  21. PROGRAF [Suspect]
     Active Substance: TACROLIMUS\TACROLIMUS ANHYDROUS
     Indication: PRODUCT USED FOR UNKNOWN INDICATION
     Route: 065
  22. ASA [Concomitant]
     Active Substance: ASPIRIN
     Route: 065
  23. PREDNISONE. [Concomitant]
     Active Substance: PREDNISONE
     Route: 065
     Dates: start: 20110729
  24. PREDNISONE. [Concomitant]
     Active Substance: PREDNISONE
     Route: 065
     Dates: start: 20110904
  25. PREDNISONE. [Concomitant]
     Active Substance: PREDNISONE
     Route: 065
     Dates: start: 20111030
  26. PREDNISONE. [Concomitant]
     Active Substance: PREDNISONE
     Dosage: 01/NOV TO 31/DEC/2013
     Route: 065
  27. ACLASTA [Concomitant]
     Active Substance: ZOLEDRONIC ACID
     Route: 042
  28. VITAMIN C [Concomitant]
     Active Substance: ASCORBIC ACID
  29. TYLENOL [Concomitant]
     Active Substance: ACETAMINOPHEN
     Route: 048
     Dates: start: 20150827
  30. RESTASIS [Concomitant]
     Active Substance: CYCLOSPORINE
  31. LYRICA [Concomitant]
     Active Substance: PREGABALIN
     Route: 065
  32. PREDNISONE. [Concomitant]
     Active Substance: PREDNISONE
     Route: 065
     Dates: start: 20110715
  33. PREDNISONE. [Concomitant]
     Active Substance: PREDNISONE
     Route: 065
     Dates: start: 20111225
  34. MESTINON [Concomitant]
     Active Substance: PYRIDOSTIGMINE BROMIDE
     Route: 065
  35. ACLASTA [Concomitant]
     Active Substance: ZOLEDRONIC ACID
  36. PREDNISONE. [Concomitant]
     Active Substance: PREDNISONE
     Route: 065
     Dates: start: 20140101
  37. PREDNISONE. [Concomitant]
     Active Substance: PREDNISONE
     Route: 065
     Dates: start: 20140204
  38. MESTINON [Concomitant]
     Active Substance: PYRIDOSTIGMINE BROMIDE
     Dosage: 3 TO 4 PILL PER DAY
     Route: 065
     Dates: start: 20140801
  39. ASPIRIN. [Concomitant]
     Active Substance: ASPIRIN
  40. BENADRYL [Concomitant]
     Active Substance: DIPHENHYDRAMINE HYDROCHLORIDE
     Route: 048
     Dates: start: 20150827

REACTIONS (50)
  - Spinal column stenosis [Unknown]
  - Restrictive pulmonary disease [Unknown]
  - Muscle contractions involuntary [Unknown]
  - Blood cholesterol increased [Unknown]
  - Blood pressure increased [Unknown]
  - Gait disturbance [Not Recovered/Not Resolved]
  - Hyperhidrosis [Unknown]
  - Insomnia [Unknown]
  - Monocyte count increased [Recovering/Resolving]
  - Glomerular filtration rate decreased [Unknown]
  - Gastroenteritis viral [Not Recovered/Not Resolved]
  - Drug effect decreased [Unknown]
  - Nasopharyngitis [Unknown]
  - Platelet count increased [Unknown]
  - Transient ischaemic attack [Unknown]
  - Cognitive disorder [Not Recovered/Not Resolved]
  - Vertebral foraminal stenosis [Unknown]
  - Nausea [Unknown]
  - Low density lipoprotein increased [Unknown]
  - Fatigue [Not Recovered/Not Resolved]
  - Diplopia [Unknown]
  - Eyelid ptosis [Unknown]
  - Blepharospasm [Unknown]
  - Radiculopathy [Unknown]
  - Sleep apnoea syndrome [Unknown]
  - Blood creatinine increased [Unknown]
  - Haemoglobin decreased [Unknown]
  - Blood urea increased [Unknown]
  - Pneumonia [Unknown]
  - Mean cell volume increased [Unknown]
  - Haemoglobin increased [Unknown]
  - Gait disturbance [Unknown]
  - Gamma-glutamyltransferase increased [Unknown]
  - Nictitating spasm [Not Recovered/Not Resolved]
  - Dysphemia [Unknown]
  - Pain [Recovering/Resolving]
  - White blood cell count increased [Recovering/Resolving]
  - Blood pressure fluctuation [Unknown]
  - Nasopharyngitis [Not Recovered/Not Resolved]
  - Asthenia [Not Recovered/Not Resolved]
  - Blood pressure decreased [Unknown]
  - Muscular weakness [Unknown]
  - Blood immunoglobulin G decreased [Unknown]
  - Spinal pain [Unknown]
  - Peripheral sensory neuropathy [Unknown]
  - Neutrophil count increased [Recovered/Resolved]
  - Malaise [Unknown]
  - Therapeutic response decreased [Unknown]
  - Ill-defined disorder [Unknown]
  - Postural tremor [Unknown]

NARRATIVE: CASE EVENT DATE: 20151223
